FAERS Safety Report 7785337-0 (Version None)
Quarter: 2011Q3

REPORT INFORMATION
  Report Type: 
  Country: None (occurrence: None)
  Receive Date: 20110929
  Receipt Date: 20110926
  Transmission Date: 20111222
  Serious: No
  Sender: FDA-Public Use
  Company Number: US-PFIZER INC-2011228825

PATIENT
  Sex: Female
  Weight: 42.177 kg

DRUGS (1)
  1. JUNIOR STRENGTH ADVIL [Suspect]
     Indication: DYSMENORRHOEA
     Dosage: UNK
     Dates: start: 20110925

REACTIONS (1)
  - SLEEP DISORDER [None]
